FAERS Safety Report 13305311 (Version 1)
Quarter: 2017Q1

REPORT INFORMATION
  Report Type: Spontaneous
  Country: US (occurrence: US)
  Receive Date: 20170308
  Receipt Date: 20170308
  Transmission Date: 20170428
  Serious: Yes (Hospitalization)
  Sender: FDA-Public Use
  Company Number: US-AMNEAL PHARMACEUTICALS-2017AMN00224

PATIENT
  Age: 40 Year
  Sex: Female
  Weight: 57.14 kg

DRUGS (5)
  1. SULFAMETHOXAZOLE\TRIMETHOPRIM [Suspect]
     Active Substance: SULFAMETHOXAZOLE\TRIMETHOPRIM
     Indication: ACNE
     Dosage: UNK UNK, 2X/DAY. TAKE ONE TABLET ORALLY TWO TIMES A DAY UNTIL GONE
     Route: 048
     Dates: start: 20151119, end: 20151129
  2. EPIDUO [Concomitant]
     Active Substance: ADAPALENE\BENZOYL PEROXIDE
     Indication: ACNE
     Dosage: UNK APPLY TO AFFECTED AREAS DAILY AT BEDTIME
     Route: 061
     Dates: start: 20151119
  3. ZITHROMAX [Concomitant]
     Active Substance: AZITHROMYCIN DIHYDRATE
     Dosage: UNK
     Dates: end: 20151212
  4. XOPENEX HFA [Concomitant]
     Active Substance: LEVALBUTEROL TARTRATE
     Indication: WHEEZING
     Dosage: TAKE 2 PUFFS EVERY 4HOURS AS NEEDED
  5. XOPENEX HFA [Concomitant]
     Active Substance: LEVALBUTEROL TARTRATE
     Indication: DYSPNOEA

REACTIONS (6)
  - Blister [Recovering/Resolving]
  - Rash generalised [Recovering/Resolving]
  - Scar [Not Recovered/Not Resolved]
  - Pain [Recovering/Resolving]
  - Stevens-Johnson syndrome [Recovering/Resolving]
  - Pyrexia [Recovering/Resolving]

NARRATIVE: CASE EVENT DATE: 20151129
